FAERS Safety Report 5399276-6 (Version None)
Quarter: 2007Q3

REPORT INFORMATION
  Report Type: 
  Country: None (occurrence: None)
  Receive Date: 20070727
  Receipt Date: 20070717
  Transmission Date: 20080115
  Serious: Yes (Other)
  Sender: FDA-Public Use
  Company Number: B0480362A

PATIENT
  Age: 31 Year
  Sex: Female

DRUGS (6)
  1. SALBUTAMOL [Suspect]
     Indication: ASTHMA
     Route: 055
  2. AMINOPHYLLINE [Suspect]
     Indication: ASTHMA
     Route: 042
  3. ATROVENT [Suspect]
     Indication: ASTHMA
     Route: 055
  4. OXYGEN [Suspect]
     Indication: ASTHMA
     Route: 055
  5. HYDROCORTISONE [Suspect]
     Indication: ASTHMA
     Route: 042
  6. SALMETEROL [Concomitant]
     Route: 065

REACTIONS (17)
  - ASTHMA [None]
  - DEHYDRATION [None]
  - DYSPNOEA [None]
  - HYPERVENTILATION [None]
  - LUNG HYPERINFLATION [None]
  - METABOLIC ACIDOSIS [None]
  - OPERATIVE HAEMORRHAGE [None]
  - ORAL INTAKE REDUCED [None]
  - PEAK EXPIRATORY FLOW RATE INCREASED [None]
  - PREMATURE LABOUR [None]
  - PROTEIN URINE PRESENT [None]
  - RESPIRATORY FAILURE [None]
  - RESPIRATORY RATE INCREASED [None]
  - SEPSIS [None]
  - SINUS TACHYCARDIA [None]
  - URINE KETONE BODY PRESENT [None]
  - WHEEZING [None]
